FAERS Safety Report 16122581 (Version 1)
Quarter: 2019Q1

REPORT INFORMATION
  Report Type: Spontaneous
  Country: GB (occurrence: GB)
  Receive Date: 20190327
  Receipt Date: 20190327
  Transmission Date: 20190418
  Serious: Yes (Hospitalization)
  Sender: FDA-Public Use
  Company Number: GB-ACCORD-115226

PATIENT
  Age: 73 Year
  Sex: Male
  Weight: 92 kg

DRUGS (19)
  1. DOCETAXEL. [Suspect]
     Active Substance: DOCETAXEL
     Indication: HORMONE-REFRACTORY PROSTATE CANCER
     Route: 042
     Dates: start: 20181122, end: 20181130
  2. PREDNISOLONE. [Concomitant]
     Active Substance: PREDNISOLONE
  3. OXYCODONE/OXYCODONE HYDROCHLORIDE/OXYCODONE PECTINATE/OXYCODONE TEREPHTHALATE [Concomitant]
  4. SALBUTAMOL [Concomitant]
     Active Substance: ALBUTEROL
  5. LANSOPRAZOLE. [Concomitant]
     Active Substance: LANSOPRAZOLE
  6. AMLODIPINE [Concomitant]
     Active Substance: AMLODIPINE BESYLATE
  7. BISOPROLOL [Concomitant]
     Active Substance: BISOPROLOL
  8. PARACETAMOL [Concomitant]
     Active Substance: ACETAMINOPHEN
  9. PREDNISOLONE. [Concomitant]
     Active Substance: PREDNISOLONE
  10. CETIRIZINE [Concomitant]
     Active Substance: CETIRIZINE HYDROCHLORIDE
  11. BECLOMETASONE DIPROPIONATE [Concomitant]
     Active Substance: BECLOMETHASONE DIPROPIONATE
  12. APIXABAN [Concomitant]
     Active Substance: APIXABAN
  13. DEXAMETHASONE. [Concomitant]
     Active Substance: DEXAMETHASONE
  14. NORTRIPTYLINE [Concomitant]
     Active Substance: NORTRIPTYLINE
  15. DERMOL [Concomitant]
     Active Substance: BENZALKONIUM CHLORIDE\CHLORHEXIDINE HYDROCHLORIDE\ISOPROPYL MYRISTATE\PARAFFIN
  16. IRON [Concomitant]
     Active Substance: IRON
  17. HYALURONIC ACID [Concomitant]
     Active Substance: HYALURONIC ACID
  18. PREGABALIN. [Concomitant]
     Active Substance: PREGABALIN
  19. RAMIPRIL. [Concomitant]
     Active Substance: RAMIPRIL

REACTIONS (15)
  - Tonsillitis [Unknown]
  - Pallor [Unknown]
  - Mouth ulceration [Unknown]
  - Faeces discoloured [Unknown]
  - Hyponatraemia [Unknown]
  - Erythema [Unknown]
  - Acute kidney injury [Unknown]
  - Productive cough [Unknown]
  - Somnolence [Unknown]
  - Diarrhoea [Unknown]
  - Unresponsive to stimuli [Unknown]
  - Malaise [Unknown]
  - Pruritus [Unknown]
  - Hypovolaemia [Unknown]
  - Confusional state [Unknown]

NARRATIVE: CASE EVENT DATE: 20181124
